FAERS Safety Report 4843214-9 (Version None)
Quarter: 2005Q4

REPORT INFORMATION
  Report Type: 
  Country: None (occurrence: None)
  Receive Date: 20051027
  Receipt Date: 20050301
  Transmission Date: 20060501
  Serious: Yes (Hospitalization)
  Sender: FDA-Public Use
  Company Number: HQWYE781603MAR05

PATIENT
  Age: 59 Year
  Sex: Female
  Weight: 51.3 kg

DRUGS (7)
  1. PREMARIN [Suspect]
     Indication: MENOPAUSAL SYMPTOMS
     Dosage: 1.25 MG 1X PER 1 DAY  ORAL- SEE IMAGE
     Route: 048
     Dates: start: 20010101, end: 20040101
  2. PREMARIN [Suspect]
     Indication: MENOPAUSAL SYMPTOMS
     Dosage: 1.25 MG 1X PER 1 DAY  ORAL- SEE IMAGE
     Route: 048
     Dates: start: 20040101, end: 20050101
  3. PREMARIN [Suspect]
     Indication: MENOPAUSAL SYMPTOMS
     Dosage: 1.25 MG 1X PER 1 DAY  ORAL- SEE IMAGE
     Route: 048
     Dates: start: 20050201, end: 20050212
  4. CELEBREX [Concomitant]
  5. ALLEGRA [Concomitant]
  6. NEXIUM [Concomitant]
  7. KLONOPIN [Concomitant]

REACTIONS (3)
  - DRUG WITHDRAWAL SYNDROME [None]
  - HYPERSENSITIVITY [None]
  - PRURITUS [None]
